FAERS Safety Report 4766821-0 (Version None)
Quarter: 2005Q3

REPORT INFORMATION
  Report Type: 
  Country: None (occurrence: None)
  Receive Date: 20050912
  Receipt Date: 20050829
  Transmission Date: 20060218
  Serious: Yes (Hospitalization)
  Sender: FDA-Public Use
  Company Number: HQWYE321801DEC03

PATIENT
  Age: 34 Year
  Sex: Female

DRUGS (2)
  1. MYLOTARG [Suspect]
     Indication: ACUTE MYELOID LEUKAEMIA
     Dosage: 4 MG/M^2 1X PER 1 DAY, INTRAVENOUS
     Route: 042
     Dates: start: 20021014, end: 20021014
  2. MYLOTARG [Suspect]
     Indication: ACUTE MYELOID LEUKAEMIA
     Dosage: 4 MG/M^2 1X PER 1 DAY, INTRAVENOUS
     Route: 042
     Dates: start: 20021029, end: 20021029

REACTIONS (5)
  - CELLULITIS [None]
  - CONDITION AGGRAVATED [None]
  - ESCHERICHIA BACTERAEMIA [None]
  - PANCYTOPENIA [None]
  - PERIRECTAL ABSCESS [None]
